FAERS Safety Report 24419678 (Version 2)
Quarter: 2025Q1

REPORT INFORMATION
  Report Type: Spontaneous
  Country: US (occurrence: US)
  Receive Date: 20241010
  Receipt Date: 20250101
  Transmission Date: 20250409
  Serious: No
  Sender: SANOFI AVENTIS
  Company Number: US-SA-2024SA286634

PATIENT
  Sex: Female
  Weight: 72.66 kg

DRUGS (17)
  1. DUPIXENT [Suspect]
     Active Substance: DUPILUMAB
     Indication: Dermatitis atopic
     Dosage: 300 MG QOW
     Route: 058
     Dates: start: 2023
  2. HAIR SKIN NAILS [Concomitant]
  3. PROBIOTIC BLEND [Concomitant]
  4. MAGNESIUM ELEMENTAL [Concomitant]
  5. ZINC GLUCONATE [Concomitant]
     Active Substance: ZINC GLUCONATE
  6. SUPER MULTIPLE [Concomitant]
  7. IRON [Concomitant]
     Active Substance: IRON
  8. CALCIUM [Concomitant]
     Active Substance: CALCIUM
  9. POTASSIUM [Concomitant]
     Active Substance: POTASSIUM
  10. BAYER ASPIRIN [Concomitant]
     Active Substance: ASPIRIN
  11. ASPIRIN [Concomitant]
     Active Substance: ASPIRIN
  12. EQUATE ALLERGY RELIEF [FEXOFENADINE HYDROCHLORIDE] [Concomitant]
  13. FLUTICASONE PROPIONATE [Concomitant]
     Active Substance: FLUTICASONE PROPIONATE
  14. VITAMIN C [Concomitant]
     Active Substance: ASCORBIC ACID
  15. VITAMIN B COMPLEX [Concomitant]
     Active Substance: CYANOCOBALAMIN\DEXPANTHENOL\NIACINAMIDE\PYRIDOXINE HYDROCHLORIDE\RIBOFLAVIN 5^-PHOSPHATE SODIUM\THIA
  16. ASPIRIN [Concomitant]
     Active Substance: ASPIRIN
  17. VITAMIN B12 [Concomitant]
     Active Substance: CYANOCOBALAMIN

REACTIONS (6)
  - Rash erythematous [Unknown]
  - Skin haemorrhage [Unknown]
  - Skin weeping [Unknown]
  - Dry skin [Unknown]
  - Pruritus [Unknown]
  - Drug ineffective [Unknown]
